FAERS Safety Report 7220443-0 (Version None)
Quarter: 2011Q1

REPORT INFORMATION
  Report Type: 
  Country: None (occurrence: None)
  Receive Date: 20110111
  Receipt Date: 20101230
  Transmission Date: 20110831
  Serious: Yes (Hospitalization, Other)
  Sender: FDA-Public Use
  Company Number: PHEH2007US05483

PATIENT
  Sex: Female
  Weight: 92.517 kg

DRUGS (56)
  1. MIRALAX [Concomitant]
     Dosage: AS NEEDED
  2. SENOKOT                                 /UNK/ [Concomitant]
     Dosage: AS NEEDED
  3. LIPITOR [Concomitant]
  4. DURAGESIC-50 [Concomitant]
     Dosage: 50 MCG, EVERY 72 HOURS
  5. CIPRO [Concomitant]
  6. LOMOTIL [Concomitant]
     Dosage: 5 MG
  7. BENADRYL ^PFIZER WARNER-LAMBERT^ [Concomitant]
     Dosage: 25 MG
  8. ESTRACE [Concomitant]
     Dosage: 1 MG, QHS
     Route: 048
  9. ZYLOPRIM [Concomitant]
     Dosage: 300 MG, QD
     Route: 048
  10. DIPHENHYDRAMINE [Concomitant]
     Route: 042
  11. SIMETHICONE [Concomitant]
     Dosage: PRN
     Route: 048
  12. DICYCLOMINE [Concomitant]
     Dosage: PRN
     Route: 048
  13. POTASSIUM [Concomitant]
     Dosage: 20 MEQ DAILY
  14. SEPTRA DS [Concomitant]
     Dosage: UNK, BID
  15. FLAGYL [Concomitant]
     Dosage: 250 MG, TID
  16. PROMETHAZINE [Concomitant]
     Route: 042
  17. ADRIAMYCIN PFS [Concomitant]
  18. PROCRIT                            /00909301/ [Concomitant]
     Dosage: 40, 000 UNITS WEEKLY
  19. LEVAQUIN [Concomitant]
     Dosage: 500 MG DAILY
  20. PEPCID [Concomitant]
     Dosage: 40 MG, AS NEEDED
  21. ZOVIRAX [Concomitant]
     Dosage: 200 MG, Q12H
     Route: 048
  22. K-DUR [Concomitant]
     Dosage: 20 MEQ DAILY
  23. XANAX [Concomitant]
     Dosage: 0.5MG, ONE
     Route: 048
  24. MAGNESIUM SULFATE [Concomitant]
     Dosage: PRN
  25. PHENERGAN [Concomitant]
     Dosage: 25 MG, Q6H
  26. SODIUM CHLORIDE [Concomitant]
  27. LASIX [Concomitant]
     Dosage: 20 MG, PRN
     Route: 042
  28. ZOMETA [Suspect]
     Dosage: MONTHLY
     Dates: start: 20011201
  29. PRILOSEC [Concomitant]
     Dosage: 20MG AS NEEDED
  30. MS CONTIN [Concomitant]
     Dosage: 30MG TWICE DAILY
  31. DECADRON [Concomitant]
  32. CHLORHEXIDINE GLUCONATE [Concomitant]
     Dosage: 15 ML, Q12H
  33. PERIDEX [Concomitant]
  34. ALLOPURINOL [Concomitant]
     Dosage: 300 MG
     Route: 048
  35. FILGRASTIM [Concomitant]
  36. BEXTRA [Concomitant]
  37. TYLENOL [Concomitant]
     Dosage: UNK,
  38. INTERFERON [Concomitant]
     Dosage: 3,000,000 UNITS THREE TIMES A WEEK
  39. ACYCLOVIR [Concomitant]
     Route: 048
  40. ZOFRAN [Concomitant]
     Dosage: 24 MG
     Route: 048
  41. ALKERAN [Concomitant]
     Dosage: 172 MG
  42. AREDIA [Suspect]
     Dosage: 90MG EVERY MONTH
     Route: 042
     Dates: start: 19980627
  43. LORTAB [Concomitant]
     Dosage: 7.5MG AS NEEDED
  44. AMBIEN [Concomitant]
     Dosage: 10MG AT BEDTIME
  45. CHROMAGEN [Concomitant]
     Dosage: DAILY
  46. COMPAZINE [Concomitant]
     Dosage: UNK, PRN
  47. ACETAMINOPHEN [Concomitant]
     Dosage: 650 MG
     Route: 048
  48. PENTAZOCINE LACTATE [Concomitant]
     Dosage: 30 MG
     Route: 042
  49. COUMADIN [Concomitant]
     Dosage: 2.5MG DAILY
  50. PROZAC [Concomitant]
     Dosage: 20 MG
  51. MORPHINE [Concomitant]
  52. NYSTATIN [Concomitant]
     Dosage: 5 ML
     Route: 048
  53. PERCOCET [Concomitant]
     Route: 048
  54. DOCUSATE [Concomitant]
     Dosage: 100 MG, BID
  55. ATROPIN [Concomitant]
     Dosage: PRN
     Route: 048
  56. VINCRISTINE [Concomitant]

REACTIONS (91)
  - ASTHMA [None]
  - PAIN [None]
  - ORAL HERPES [None]
  - IRRITABILITY [None]
  - MUSCULOSKELETAL STIFFNESS [None]
  - PANCYTOPENIA [None]
  - SLEEP APNOEA SYNDROME [None]
  - GLOMERULONEPHRITIS [None]
  - DEHYDRATION [None]
  - IMMUNODEFICIENCY [None]
  - OEDEMA PERIPHERAL [None]
  - TUBULOINTERSTITIAL NEPHRITIS [None]
  - HYPOKALAEMIA [None]
  - OESOPHAGEAL CANDIDIASIS [None]
  - RENAL FAILURE [None]
  - DYSPHAGIA [None]
  - NOCTURIA [None]
  - NAUSEA [None]
  - SENSATION OF FOREIGN BODY [None]
  - NEUROPATHY PERIPHERAL [None]
  - RESTLESS LEGS SYNDROME [None]
  - GLOMERULOSCLEROSIS [None]
  - RENAL FAILURE ACUTE [None]
  - URINARY RETENTION [None]
  - GASTRITIS [None]
  - ORAL PAIN [None]
  - MULTIPLE MYELOMA [None]
  - HYPOAESTHESIA [None]
  - AZOTAEMIA [None]
  - PYREXIA [None]
  - OROPHARYNGEAL PAIN [None]
  - BREAST TENDERNESS [None]
  - NEUTROPENIA [None]
  - BRONCHOPNEUMONIA [None]
  - RENAL IMPAIRMENT [None]
  - SINUS TACHYCARDIA [None]
  - VENA CAVA THROMBOSIS [None]
  - METABOLIC ACIDOSIS [None]
  - OSTEONECROSIS OF JAW [None]
  - BREAST MASS [None]
  - PAIN IN EXTREMITY [None]
  - OESOPHAGEAL STENOSIS [None]
  - CHEST PAIN [None]
  - PROTEINURIA [None]
  - BACK PAIN [None]
  - MYALGIA [None]
  - STREPTOCOCCAL SEPSIS [None]
  - OESOPHAGEAL SPASM [None]
  - HYPOTHYROIDISM [None]
  - TRICUSPID VALVE INCOMPETENCE [None]
  - OESOPHAGEAL PAIN [None]
  - ASTHENIA [None]
  - MUSCLE SPASMS [None]
  - NECK PAIN [None]
  - RECTAL HAEMORRHAGE [None]
  - ODYNOPHAGIA [None]
  - LUMBAR RADICULOPATHY [None]
  - DECREASED APPETITE [None]
  - LACTOSE INTOLERANCE [None]
  - RENAL TUBULAR NECROSIS [None]
  - BLOOD PRESSURE INCREASED [None]
  - HYPERTENSION [None]
  - BLOOD ALKALINE PHOSPHATASE INCREASED [None]
  - COMPRESSION FRACTURE [None]
  - HYPERLIPIDAEMIA [None]
  - MUSCULOSKELETAL PAIN [None]
  - SUPERIOR VENA CAVA SYNDROME [None]
  - MIGRAINE [None]
  - LEUKOPENIA [None]
  - ANXIETY [None]
  - BLOOD CREATININE INCREASED [None]
  - LIGHT CHAIN ANALYSIS INCREASED [None]
  - NASAL CONGESTION [None]
  - ARTHRALGIA [None]
  - BREAST PAIN [None]
  - BONE PAIN [None]
  - RENAL FAILURE CHRONIC [None]
  - FALL [None]
  - PNEUMONIA [None]
  - HYPOGAMMAGLOBULINAEMIA [None]
  - OVERWEIGHT [None]
  - GASTRODUODENITIS [None]
  - INJURY [None]
  - OSTEOLYSIS [None]
  - DYSPNOEA [None]
  - CONSTIPATION [None]
  - DYSPEPSIA [None]
  - FATIGUE [None]
  - OSTEOPENIA [None]
  - THROMBOCYTOPENIA [None]
  - BRONCHITIS [None]
